FAERS Safety Report 19779500 (Version 9)
Quarter: 2022Q4

REPORT INFORMATION
  Report Type: Spontaneous
  Country: US (occurrence: US)
  Receive Date: 20210902
  Receipt Date: 20221207
  Transmission Date: 20230113
  Serious: Yes (Other)
  Sender: FDA-Public Use
  Company Number: US-PFIZER INC-202101076737

PATIENT
  Age: 77 Year
  Sex: Female

DRUGS (5)
  1. INLYTA [Suspect]
     Active Substance: AXITINIB
     Dosage: 5 MG
     Dates: start: 20210706
  2. INLYTA [Suspect]
     Active Substance: AXITINIB
     Dosage: 5 MG, 2X/DAY
     Dates: start: 20210812, end: 2021
  3. INLYTA [Suspect]
     Active Substance: AXITINIB
     Dosage: 5 MG, ONE TABLET DAILY ON SUN, TUES, THURS, SAT. THEN TWICE DAILY ON MON, WED, AND FRI
     Dates: start: 20210813
  4. INLYTA [Suspect]
     Active Substance: AXITINIB
     Dosage: 5 MG, 1X/DAY (1 PILL ONCE DAILY)
     Dates: start: 20220310, end: 202204
  5. INLYTA [Suspect]
     Active Substance: AXITINIB
     Dosage: 10 MG, 2X/WEEK (TWO A DAY TWICE A WEEK)

REACTIONS (15)
  - Renal impairment [Unknown]
  - Device related infection [Unknown]
  - Hypertension [Recovered/Resolved]
  - Weight decreased [Unknown]
  - Nausea [Unknown]
  - Gastrooesophageal reflux disease [Unknown]
  - Constipation [Unknown]
  - Diarrhoea [Unknown]
  - Headache [Unknown]
  - Alopecia [Unknown]
  - Blood pressure fluctuation [Unknown]
  - Vision blurred [Unknown]
  - Off label use [Unknown]
  - Product use issue [Unknown]
  - Product dose omission issue [Unknown]

NARRATIVE: CASE EVENT DATE: 20210101
